FAERS Safety Report 18933326 (Version 3)
Quarter: 2021Q2

REPORT INFORMATION
  Report Type: Report from Study
  Country: CA (occurrence: CA)
  Receive Date: 20210224
  Receipt Date: 20210602
  Transmission Date: 20210717
  Serious: Yes (Other)
  Sender: FDA-Public Use
  Company Number: CA-JNJFOC-20201151830

PATIENT
  Age: 57 Year
  Sex: Female
  Weight: 120 kg

DRUGS (2)
  1. REMICADE [Suspect]
     Active Substance: INFLIXIMAB
     Indication: CROHN^S DISEASE
  2. REMICADE [Suspect]
     Active Substance: INFLIXIMAB
     Indication: HIDRADENITIS
     Route: 042
     Dates: start: 20090806

REACTIONS (10)
  - Frequent bowel movements [Recovered/Resolved]
  - Skin cancer [Unknown]
  - Stoma creation [Unknown]
  - Wound infection [Not Recovered/Not Resolved]
  - Bloody discharge [Unknown]
  - Vulval disorder [Unknown]
  - Abdominal pain [Recovered/Resolved]
  - Abscess [Not Recovered/Not Resolved]
  - Wound [Unknown]
  - Skin lesion [Unknown]
